FAERS Safety Report 13007315 (Version 3)
Quarter: 2020Q2

REPORT INFORMATION
  Report Type: Spontaneous
  Country: US (occurrence: US)
  Receive Date: 20161207
  Receipt Date: 20200609
  Transmission Date: 20200713
  Serious: Yes (Death, Life-Threatening, Hospitalization)
  Sender: FDA-Public Use
  Company Number: US-JNJFOC-20161203856

PATIENT
  Age: 75 Year
  Sex: Female

DRUGS (5)
  1. XARELTO [Suspect]
     Active Substance: RIVAROXABAN
     Indication: CEREBROVASCULAR ACCIDENT PROPHYLAXIS
     Route: 048
     Dates: end: 20150220
  2. XARELTO [Suspect]
     Active Substance: RIVAROXABAN
     Indication: ATRIAL FIBRILLATION
     Route: 048
     Dates: start: 20141202, end: 201412
  3. XARELTO [Suspect]
     Active Substance: RIVAROXABAN
     Indication: THROMBOSIS PROPHYLAXIS
  4. ASPIRIN                            /00002701/ [Suspect]
     Active Substance: ASPIRIN
     Indication: STENT PLACEMENT
     Route: 048
     Dates: end: 201412
  5. PLAVIX [Suspect]
     Active Substance: CLOPIDOGREL BISULFATE
     Indication: STENT PLACEMENT
     Route: 048
     Dates: end: 201412

REACTIONS (3)
  - Lower gastrointestinal haemorrhage [Recovered/Resolved]
  - Haematoma [Recovering/Resolving]
  - Shock haemorrhagic [Recovered/Resolved]

NARRATIVE: CASE EVENT DATE: 20141203
